FAERS Safety Report 4467272-9 (Version None)
Quarter: 2004Q4

REPORT INFORMATION
  Report Type: 
  Country: None (occurrence: None)
  Receive Date: 20041006
  Receipt Date: 20040927
  Transmission Date: 20050328
  Serious: Yes (Other)
  Sender: FDA-Public Use
  Company Number: PHBS2004CO12898

PATIENT
  Age: 37 Year
  Sex: Female

DRUGS (1)
  1. COMBAREN [Suspect]
     Indication: ORAL PAIN
     Dosage: 1 TAB/DAY
     Route: 048
     Dates: start: 20040926, end: 20040926

REACTIONS (3)
  - HYPOTENSION [None]
  - SENSATION OF HEAVINESS [None]
  - TACHYCARDIA [None]
